FAERS Safety Report 5978680-9 (Version None)
Quarter: 2008Q4

REPORT INFORMATION
  Report Type: 
  Country: None (occurrence: None)
  Receive Date: 20081204
  Receipt Date: 20081128
  Transmission Date: 20090506
  Serious: Yes (Other)
  Sender: FDA-Public Use
  Company Number: JP-ASTRAZENECA-2008AP08806

PATIENT
  Age: 29 Year
  Sex: Male
  Weight: 62 kg

DRUGS (2)
  1. NAROPIN [Suspect]
     Indication: NERVE BLOCK
     Route: 053
     Dates: start: 20081107, end: 20081107
  2. XYLOCAINE [Suspect]
     Indication: NERVE BLOCK
     Route: 053
     Dates: start: 20081107, end: 20081107

REACTIONS (5)
  - CONVULSION [None]
  - CYANOSIS [None]
  - DRUG TOXICITY [None]
  - METABOLIC ACIDOSIS [None]
  - TACHYCARDIA [None]
